FAERS Safety Report 24113851 (Version 1)
Quarter: 2024Q3

REPORT INFORMATION
  Report Type: Spontaneous
  Country: FR (occurrence: FR)
  Receive Date: 20240720
  Receipt Date: 20240720
  Transmission Date: 20241017
  Serious: Yes (Hospitalization, Other)
  Sender: AUROBINDO
  Company Number: FR-AFSSAPS-MP2024001127

PATIENT
  Age: 86 Year
  Sex: Female
  Weight: 65 kg

DRUGS (4)
  1. AMOXICILLIN [Suspect]
     Active Substance: AMOXICILLIN
     Indication: Nasopharyngitis
     Dosage: UNK
     Route: 048
     Dates: start: 20240612, end: 20240617
  2. FLUOXETINE [Suspect]
     Active Substance: FLUOXETINE HYDROCHLORIDE
     Indication: Product used for unknown indication
     Dosage: UNK
     Route: 065
     Dates: start: 2022, end: 20240626
  3. OXOMEMAZINE [Suspect]
     Active Substance: OXOMEMAZINE
     Indication: Nasopharyngitis
     Dosage: UNK
     Route: 048
     Dates: start: 20240612, end: 20240617
  4. TIXOCORTOL PIVALATE [Suspect]
     Active Substance: TIXOCORTOL PIVALATE
     Indication: Nasopharyngitis
     Dosage: UNK
     Route: 045
     Dates: start: 20240612, end: 20240617

REACTIONS (1)
  - Uveitis [Recovering/Resolving]

NARRATIVE: CASE EVENT DATE: 20240617
